FAERS Safety Report 11388960 (Version 12)
Quarter: 2025Q3

REPORT INFORMATION
  Report Type: Spontaneous
  Country: US (occurrence: US)
  Receive Date: 20150817
  Receipt Date: 20250804
  Transmission Date: 20251021
  Serious: Yes (Hospitalization, Other)
  Sender: PFIZER
  Company Number: US-PFIZER INC-2015273572

PATIENT
  Age: 69 Year
  Sex: Female
  Weight: 73 kg

DRUGS (19)
  1. XELJANZ [Suspect]
     Active Substance: TOFACITINIB CITRATE
     Indication: Osteoarthritis
     Dosage: 5MG TWICE DAILY (AT 5 AM AND 5 PM)
     Route: 048
     Dates: start: 20140516
  2. XELJANZ [Suspect]
     Active Substance: TOFACITINIB CITRATE
     Indication: Rheumatoid arthritis
     Dosage: 5MG TWICE DAILY (AT 5 AM AND 5 PM)
     Route: 048
  3. XELJANZ [Suspect]
     Active Substance: TOFACITINIB CITRATE
     Dosage: 5 MG, 2X/DAY
     Route: 048
  4. XELJANZ [Suspect]
     Active Substance: TOFACITINIB CITRATE
     Dosage: 5 MG, 2X/DAY (ONE IN THE MORNING AND ONE AT NIGHT)
     Route: 048
  5. XELJANZ [Suspect]
     Active Substance: TOFACITINIB CITRATE
     Route: 048
     Dates: end: 20221013
  6. IPRATROPIUM BROMIDE AND ALBUTEROL SULFATE [Concomitant]
     Active Substance: ALBUTEROL SULFATE\IPRATROPIUM BROMIDE
     Route: 045
  7. CALCIUM [Concomitant]
     Active Substance: CALCIUM
     Indication: Arthritis
     Dosage: 600 MG, 1X/DAY
     Route: 048
  8. CALCIUM [Concomitant]
     Active Substance: CALCIUM
     Indication: Bone disorder
  9. VITAMIN D3 [Concomitant]
     Active Substance: CHOLECALCIFEROL
     Indication: Bone disorder
     Dosage: 1000 IU, DAILY
     Route: 048
  10. VITAMIN E [Concomitant]
     Active Substance: .ALPHA.-TOCOPHEROL
     Indication: Impaired healing
     Dosage: 400 IU, DAILY
     Route: 048
  11. B12 [Concomitant]
     Indication: Asthenia
     Dosage: 1000 UG, DAILY
     Route: 048
     Dates: start: 201508
  12. VITAMIN C [Concomitant]
     Active Substance: ASCORBIC ACID
     Dosage: 500 MG, DAILY
     Route: 048
     Dates: start: 2013
  13. HYDROXYZINE [Concomitant]
     Active Substance: HYDROXYZINE HYDROCHLORIDE
     Indication: Lichen sclerosus
     Route: 048
     Dates: start: 2012
  14. HYDROXYZINE [Concomitant]
     Active Substance: HYDROXYZINE HYDROCHLORIDE
     Dosage: 25 MG, 1X/DAY (AT NIGHT)
     Route: 048
  15. ZYRTEC [Concomitant]
     Active Substance: CETIRIZINE HYDROCHLORIDE
     Indication: Gastrooesophageal reflux disease
     Dates: start: 2012
  16. FAMOTIDINE [Concomitant]
     Active Substance: FAMOTIDINE
     Indication: Gastrooesophageal reflux disease
     Dates: start: 2012
  17. MINERALS\VITAMINS [Concomitant]
     Active Substance: MINERALS\VITAMINS
     Route: 048
  18. HYDROCHLOROTHIAZIDE\LISINOPRIL [Concomitant]
     Active Substance: HYDROCHLOROTHIAZIDE\LISINOPRIL
     Indication: Blood pressure abnormal
     Dosage: 1 DF, 1X/DAY (LISINOPRIL: 5 MG)/ (HYDROCHLOROTHIAZIDE: 12.5MG)
     Route: 048
     Dates: start: 201611
  19. HYDROCHLOROTHIAZIDE\LISINOPRIL [Concomitant]
     Active Substance: HYDROCHLOROTHIAZIDE\LISINOPRIL
     Indication: Polyuria
     Dosage: 1 DF, 1X/DAY (LISINOPRIL: 10 MG)/ (HYDROCHLOROTHIAZIDE: 12.5MG)
     Route: 048

REACTIONS (14)
  - Hyperaesthesia [Recovered/Resolved]
  - Pain in extremity [Not Recovered/Not Resolved]
  - Muscle tightness [Recovered/Resolved]
  - Dysstasia [Recovered/Resolved]
  - Eye pain [Not Recovered/Not Resolved]
  - Nausea [Recovered/Resolved]
  - Headache [Recovered/Resolved]
  - Angina pectoris [Recovered/Resolved]
  - Thrombosis [Recovered/Resolved]
  - Cough [Not Recovered/Not Resolved]
  - Throat irritation [Unknown]
  - Pain [Unknown]
  - Intervertebral disc protrusion [Unknown]
  - Peripheral swelling [Unknown]

NARRATIVE: CASE EVENT DATE: 20220912
